FAERS Safety Report 10249640 (Version 1)
Quarter: 2014Q2

REPORT INFORMATION
  Report Type: Spontaneous
  Country: US (occurrence: None)
  Receive Date: 20140618
  Receipt Date: 20140618
  Transmission Date: 20141212
  Serious: Yes (Life-Threatening)
  Sender: FDA-Public Use
  Company Number: None

PATIENT
  Age: 39 Year
  Sex: Female
  Weight: 64.41 kg

DRUGS (1)
  1. PROVIGIL 200 [Suspect]
     Indication: FATIGUE
     Dosage: 1 PILL, ONCE DAILY, TAKEN BY MOUTH
     Route: 048

REACTIONS (4)
  - Headache [None]
  - Morbid thoughts [None]
  - Suicidal ideation [None]
  - Somnolence [None]
